FAERS Safety Report 7125475-9 (Version None)
Quarter: 2010Q4

REPORT INFORMATION
  Report Type: 
  Country: None (occurrence: None)
  Receive Date: 20101129
  Receipt Date: 20101122
  Transmission Date: 20110411
  Serious: Yes (Hospitalization)
  Sender: FDA-Public Use
  Company Number: FR-AMGEN-FRANI2010000668

PATIENT

DRUGS (8)
  1. DARBEPOETIN ALFA [Suspect]
     Indication: RENAL FAILURE CHRONIC
     Dosage: UNK
     Route: 042
     Dates: start: 20090404
  2. MOPRAL                             /00661201/ [Concomitant]
     Dosage: 40 MG, QD
  3. LOVENOX [Concomitant]
  4. UN ALFA [Concomitant]
     Dosage: 1 MG, TID
  5. RANITEC [Concomitant]
     Dosage: 5 MG, QD
  6. RENAGEL                            /01459901/ [Concomitant]
     Dosage: 800 MG, QD
  7. CALCIUM CARBONATE [Concomitant]
  8. SODIUM BICARBONATE [Concomitant]

REACTIONS (1)
  - HAEMATURIA [None]
